FAERS Safety Report 4933119-7 (Version None)
Quarter: 2006Q1

REPORT INFORMATION
  Report Type: 
  Country: None (occurrence: None)
  Receive Date: 20060306
  Receipt Date: 20060224
  Transmission Date: 20060701
  Serious: Yes (Hospitalization)
  Sender: FDA-Public Use
  Company Number: 2006AP00995

PATIENT
  Age: 40 Year
  Sex: Female

DRUGS (4)
  1. PULMICORT [Suspect]
     Indication: ASTHMA
     Route: 055
     Dates: start: 20060217, end: 20060220
  2. ALESION [Suspect]
     Route: 048
     Dates: start: 20060217, end: 20060220
  3. SELEVENT [Suspect]
     Route: 055
     Dates: start: 20060217, end: 20060220
  4. SULTANOL [Suspect]
     Route: 055
     Dates: start: 20060217, end: 20060220

REACTIONS (4)
  - BLOOD PRESSURE INCREASED [None]
  - HEADACHE [None]
  - PALPITATIONS [None]
  - RASH [None]
